FAERS Safety Report 6300308-9 (Version None)
Quarter: 2009Q3

REPORT INFORMATION
  Report Type: 
  Country: None (occurrence: None)
  Receive Date: 20090804
  Receipt Date: 20090724
  Transmission Date: 20100115
  Serious: Yes (Hospitalization, Congenital Anomaly, Other)
  Sender: FDA-Public Use
  Company Number: 84478

PATIENT
  Age: 19 Year
  Sex: Female

DRUGS (2)
  1. NOREPINEPHRINE BITARTRATE [Suspect]
     Indication: BLOOD PRESSURE MANAGEMENT
  2. NOREPINEPHRINE BITARTRATE [Suspect]
     Indication: PYELONEPHRITIS

REACTIONS (3)
  - CEREBRAL HAEMORRHAGE FOETAL [None]
  - CEREBRAL VENTRICLE DILATATION [None]
  - MATERNAL DRUGS AFFECTING FOETUS [None]
